FAERS Safety Report 8205386-8 (Version None)
Quarter: 2012Q1

REPORT INFORMATION
  Report Type: 
  Country: None (occurrence: None)
  Receive Date: 20120313
  Receipt Date: 20120227
  Transmission Date: 20120608
  Serious: Yes (Hospitalization, Other)
  Sender: FDA-Public Use
  Company Number: KP-WATSON-2012-03644

PATIENT
  Age: 31 Year
  Sex: Male

DRUGS (1)
  1. METRONIDAZOLE [Suspect]
     Indication: CROHN'S DISEASE
     Dosage: 3 TIMES THE USUAL DOSE
     Route: 065

REACTIONS (8)
  - TOXIC ENCEPHALOPATHY [None]
  - ALTERED STATE OF CONSCIOUSNESS [None]
  - SPEECH DISORDER [None]
  - CONFUSIONAL STATE [None]
  - COGNITIVE DISORDER [None]
  - NUCLEAR MAGNETIC RESONANCE IMAGING BRAIN ABNORMAL [None]
  - OVERDOSE [None]
  - SOMNOLENCE [None]
